FAERS Safety Report 19889334 (Version 5)
Quarter: 2022Q2

REPORT INFORMATION
  Report Type: Report from Study
  Country: US (occurrence: US)
  Receive Date: 20210928
  Receipt Date: 20220409
  Transmission Date: 20220721
  Serious: No
  Sender: FDA-Public Use
  Company Number: NVSC2021US219488

PATIENT
  Sex: Female

DRUGS (1)
  1. KESIMPTA [Suspect]
     Active Substance: OFATUMUMAB
     Indication: Product used for unknown indication
     Dosage: UNK
     Route: 065

REACTIONS (8)
  - Condition aggravated [Unknown]
  - Clumsiness [Unknown]
  - Disorganised speech [Unknown]
  - Gait disturbance [Unknown]
  - Fatigue [Unknown]
  - COVID-19 [Recovering/Resolving]
  - Nasopharyngitis [Recovering/Resolving]
  - Road traffic accident [Not Recovered/Not Resolved]
